FAERS Safety Report 7336134-1 (Version None)
Quarter: 2011Q1

REPORT INFORMATION
  Report Type: 
  Country: None (occurrence: None)
  Receive Date: 20110302
  Receipt Date: 20110302
  Transmission Date: 20110831
  Serious: Yes (Hospitalization)
  Sender: FDA-Public Use
  Company Number: None

PATIENT
  Age: 78 Year
  Sex: Female
  Weight: 87.9978 kg

DRUGS (1)
  1. DILANTIN [Suspect]
     Indication: EPILEPSY
     Dosage: 200 MG 3 NIGHTS/300MG 4 PO (DURATION: COUPLE YEARS)
     Route: 048

REACTIONS (2)
  - PRODUCT SUBSTITUTION ISSUE [None]
  - CONVULSION [None]
